FAERS Safety Report 25396611 (Version 3)
Quarter: 2025Q2

REPORT INFORMATION
  Report Type: Report from Study
  Country: US (occurrence: US)
  Receive Date: 20250604
  Receipt Date: 20250626
  Transmission Date: 20250717
  Serious: Yes (Death)
  Sender: BAUSCH AND LOMB
  Company Number: US-BAUSCH-BL-2025-002420

PATIENT
  Age: 74 Year
  Sex: Male

DRUGS (2)
  1. XIFAXAN [Suspect]
     Active Substance: RIFAXIMIN
     Indication: Hepatic cirrhosis
     Route: 048
  2. XIFAXAN [Suspect]
     Active Substance: RIFAXIMIN
     Dosage: ONCE A DAY IN THE MORNING
     Route: 048

REACTIONS (2)
  - Cardiac failure congestive [Fatal]
  - Product use issue [Unknown]

NARRATIVE: CASE EVENT DATE: 20250530
